FAERS Safety Report 7962741-9 (Version None)
Quarter: 2011Q4

REPORT INFORMATION
  Report Type: 
  Country: None (occurrence: None)
  Receive Date: 20111207
  Receipt Date: 20111202
  Transmission Date: 20120403
  Serious: Yes (Other)
  Sender: FDA-Public Use
  Company Number: ES-PFIZER INC-2011295545

PATIENT
  Sex: Male

DRUGS (2)
  1. LYRICA [Suspect]
     Dosage: 300 MG, PER DAY
  2. LYRICA [Suspect]
     Indication: JOINT INJURY
     Dosage: 150 MG, PER DAY

REACTIONS (4)
  - NIGHTMARE [None]
  - CONVULSION [None]
  - AMNESIA [None]
  - HALLUCINATION [None]
